FAERS Safety Report 5718026-4 (Version None)
Quarter: 2008Q2

REPORT INFORMATION
  Report Type: 
  Country: None (occurrence: None)
  Receive Date: 20080425
  Receipt Date: 20080423
  Transmission Date: 20081010
  Serious: Yes (Hospitalization)
  Sender: FDA-Public Use
  Company Number: D0056856A

PATIENT
  Age: 39 Year
  Sex: Male
  Weight: 68 kg

DRUGS (1)
  1. SULTANOL [Suspect]
     Route: 055
     Dates: start: 20080408, end: 20080408

REACTIONS (5)
  - ACCIDENTAL EXPOSURE [None]
  - FEELING HOT [None]
  - GAIT DISTURBANCE [None]
  - SYSTOLIC HYPERTENSION [None]
  - TACHYCARDIA [None]
